FAERS Safety Report 26187836 (Version 1)
Quarter: 2025Q4

REPORT INFORMATION
  Report Type: Report from Study
  Country: CA (occurrence: CA)
  Receive Date: 20251222
  Receipt Date: 20251222
  Transmission Date: 20260117
  Serious: Yes (Other)
  Sender: JOHNSON AND JOHNSON
  Company Number: CA-JNJFOC-20251013184

PATIENT
  Age: 3 Decade
  Sex: Female

DRUGS (2)
  1. REMICADE [Suspect]
     Active Substance: INFLIXIMAB
     Indication: Crohn^s disease
     Route: 041
     Dates: start: 20240613
  2. REMICADE [Suspect]
     Active Substance: INFLIXIMAB
     Route: 041
     Dates: start: 20240613

REACTIONS (3)
  - Gastrointestinal fistula [Not Recovered/Not Resolved]
  - Nephrolithiasis [Recovering/Resolving]
  - Influenza [Not Recovered/Not Resolved]
